FAERS Safety Report 25755414 (Version 2)
Quarter: 2025Q4

REPORT INFORMATION
  Report Type: Spontaneous
  Country: GB (occurrence: GB)
  Receive Date: 20250903
  Receipt Date: 20251204
  Transmission Date: 20260118
  Serious: Yes (Other)
  Sender: EMD SERONO INC
  Company Number: GB-Merck Healthcare KGaA-2025044642

PATIENT
  Sex: Male

DRUGS (2)
  1. SAIZEN [Suspect]
     Active Substance: SOMATROPIN
     Indication: Growth hormone deficiency
     Dates: start: 20250709
  2. SAIZEN [Suspect]
     Active Substance: SOMATROPIN

REACTIONS (1)
  - Recurrent cancer [Unknown]
